FAERS Safety Report 6647471-8 (Version None)
Quarter: 2010Q1

REPORT INFORMATION
  Report Type: 
  Country: None (occurrence: None)
  Receive Date: 20100323
  Receipt Date: 20100323
  Transmission Date: 20100710
  Serious: Yes (Other)
  Sender: FDA-Public Use
  Company Number: None

PATIENT
  Sex: Male
  Weight: 40.0073 kg

DRUGS (2)
  1. TAMIFLU [Suspect]
     Indication: INFLUENZA
     Dosage: 75MG BID PO
     Route: 048
     Dates: start: 20091028
  2. PROMETHAZINE [Suspect]
     Indication: VOMITING
     Dosage: 12.5MG Q4HRS PO
     Route: 048
     Dates: start: 20091028

REACTIONS (1)
  - URTICARIA [None]
